FAERS Safety Report 12792785 (Version 1)
Quarter: 2016Q3

REPORT INFORMATION
  Report Type: Spontaneous
  Country: US (occurrence: US)
  Receive Date: 20160929
  Receipt Date: 20160929
  Transmission Date: 20161109
  Serious: No
  Sender: FDA-Public Use
  Company Number: US-JAZZ-2016-US-011581

PATIENT
  Sex: Female

DRUGS (53)
  1. XYREM [Suspect]
     Active Substance: SODIUM OXYBATE
     Indication: NARCOLEPSY
     Dosage: 2.25 G, BID
     Route: 048
     Dates: start: 201509
  2. METHYLPHENIDATE. [Concomitant]
     Active Substance: METHYLPHENIDATE
  3. OXYCODONE HYDROCHLORIDE. [Concomitant]
     Active Substance: OXYCODONE HYDROCHLORIDE
  4. SILVADENE [Concomitant]
     Active Substance: SILVER SULFADIAZINE
  5. ENBREL [Concomitant]
     Active Substance: ETANERCEPT
  6. COLLAGENASE SANTYL [Concomitant]
     Active Substance: COLLAGENASE CLOSTRIDIUM HISTOLYTICUM
  7. MAGIC MOUTHWASH [Concomitant]
     Active Substance: DIPHENHYDRAMINE HYDROCHLORIDE\LIDOCAINE HYDROCHLORIDE\NYSTATIN
  8. CALCIUM GLUCONATE. [Concomitant]
     Active Substance: CALCIUM GLUCONATE
  9. CYANOCOBALAMIN. [Concomitant]
     Active Substance: CYANOCOBALAMIN
  10. LUTEIN [Concomitant]
     Active Substance: LUTEIN
  11. VITAMIN C [Concomitant]
     Active Substance: ASCORBIC ACID
  12. DEXILANT [Concomitant]
     Active Substance: DEXLANSOPRAZOLE
  13. ADVAIR HFA [Concomitant]
     Active Substance: FLUTICASONE PROPIONATE\SALMETEROL XINAFOATE
  14. FLONASE [Concomitant]
     Active Substance: FLUTICASONE PROPIONATE
  15. HYDROMET [Concomitant]
     Active Substance: HOMATROPINE METHYLBROMIDE\HYDROCODONE BITARTRATE
  16. NUVIGIL [Concomitant]
     Active Substance: ARMODAFINIL
  17. PROMETHAZINE - CODEINE [Concomitant]
     Active Substance: CODEINE\PROMETHAZINE
  18. RESTASIS [Concomitant]
     Active Substance: CYCLOSPORINE
  19. L-LYSINE [Concomitant]
     Active Substance: LYSINE
  20. LEVAQUIN [Concomitant]
     Active Substance: LEVOFLOXACIN
  21. LIDOCAINE. [Concomitant]
     Active Substance: LIDOCAINE
  22. PREDNISONE. [Concomitant]
     Active Substance: PREDNISONE
  23. TRETINOIN. [Concomitant]
     Active Substance: TRETINOIN
  24. VITAMIN D3 [Concomitant]
     Active Substance: CHOLECALCIFEROL
  25. EPIPEN [Concomitant]
     Active Substance: EPINEPHRINE
  26. IPRATROPIUM BROMIDE. [Concomitant]
     Active Substance: IPRATROPIUM BROMIDE
  27. BENADRYL ALLERGY [Concomitant]
     Active Substance: DIPHENHYDRAMINE HYDROCHLORIDE
  28. REQUIP [Concomitant]
     Active Substance: ROPINIROLE HYDROCHLORIDE
  29. SYMBICORT [Concomitant]
     Active Substance: BUDESONIDE\FORMOTEROL FUMARATE DIHYDRATE
  30. ZOLPIDEM TARTRATE. [Concomitant]
     Active Substance: ZOLPIDEM TARTRATE
  31. TYLENOL [Concomitant]
     Active Substance: ACETAMINOPHEN
  32. LOTEMAX [Concomitant]
     Active Substance: LOTEPREDNOL ETABONATE
  33. CORTISPORIN [Concomitant]
     Active Substance: BACITRACIN ZINC\HYDROCORTISONE\NEOMYCIN SULFATE\POLYMYXIN B SULFATE
  34. CIPRO [Concomitant]
     Active Substance: CIPROFLOXACIN HYDROCHLORIDE
  35. ALLERGY [Concomitant]
     Active Substance: UNSPECIFIED INGREDIENT
  36. BACLOFEN. [Concomitant]
     Active Substance: BACLOFEN
  37. PREVACID [Concomitant]
     Active Substance: LANSOPRAZOLE
  38. VOLTAREN [Concomitant]
     Active Substance: DICLOFENAC SODIUM
  39. XOPENEX HFA [Concomitant]
     Active Substance: LEVALBUTEROL TARTRATE
  40. NYSTATIN. [Concomitant]
     Active Substance: NYSTATIN
  41. BIOTIN [Concomitant]
     Active Substance: BIOTIN
  42. BOTOX [Concomitant]
     Active Substance: ONABOTULINUMTOXINA
  43. DUONEB [Concomitant]
     Active Substance: ALBUTEROL SULFATE\IPRATROPIUM BROMIDE
  44. RELPAX [Concomitant]
     Active Substance: ELETRIPTAN HYDROBROMIDE
  45. SINGULAIR [Concomitant]
     Active Substance: MONTELUKAST SODIUM
  46. UREA. [Concomitant]
     Active Substance: UREA
  47. ARTIFICIAL TEARS [Concomitant]
     Active Substance: GLYCERIN\HYPROMELLOSES\POLYETHYLENE GLYCOL 400
  48. XYREM [Suspect]
     Active Substance: SODIUM OXYBATE
     Indication: CATAPLEXY
  49. GABAPENTIN. [Concomitant]
     Active Substance: GABAPENTIN
  50. MIRENA [Concomitant]
     Active Substance: LEVONORGESTREL
  51. VANOS [Concomitant]
     Active Substance: FLUOCINONIDE
  52. VSL 3 [Concomitant]
  53. XYZAL [Concomitant]
     Active Substance: LEVOCETIRIZINE DIHYDROCHLORIDE

REACTIONS (2)
  - Urticaria [Unknown]
  - Wrong technique in product usage process [Unknown]
